FAERS Safety Report 6218481-X (Version None)
Quarter: 2009Q2

REPORT INFORMATION
  Report Type: 
  Country: None (occurrence: None)
  Receive Date: 20090608
  Receipt Date: 20090605
  Transmission Date: 20091009
  Serious: Yes (Life-Threatening)
  Sender: FDA-Public Use
  Company Number: B0575654A

PATIENT
  Sex: Male
  Weight: 65 kg

DRUGS (3)
  1. ARIXTRA [Suspect]
     Indication: DEEP VEIN THROMBOSIS
     Dosage: 7.5MG PER DAY
     Route: 058
     Dates: start: 20090320, end: 20090323
  2. KARDEGIC [Suspect]
     Indication: CEREBROVASCULAR ACCIDENT PROPHYLAXIS
     Dosage: 160MG PER DAY
     Route: 048
  3. PREVISCAN [Suspect]
     Indication: DEEP VEIN THROMBOSIS
     Dosage: 1UNIT PER DAY
     Route: 048
     Dates: start: 20090320, end: 20090323

REACTIONS (6)
  - CONDITION AGGRAVATED [None]
  - DEEP VEIN THROMBOSIS [None]
  - DRUG INTERACTION [None]
  - HAEMATOMA [None]
  - INTERNATIONAL NORMALISED RATIO DECREASED [None]
  - RENAL FAILURE [None]
